FAERS Safety Report 17057944 (Version 1)
Quarter: 2019Q4

REPORT INFORMATION
  Report Type: Spontaneous
  Country: US (occurrence: US)
  Receive Date: 20191023
  Receipt Date: 20191023
  Transmission Date: 20200122
  Serious: No
  Sender: FDA-Public Use
  Company Number: None

PATIENT
  Age: 70 Year
  Sex: Male

DRUGS (1)
  1. ZARXIO [Suspect]
     Active Substance: FILGRASTIM-SNDZ
     Indication: PANCYTOPENIA
     Route: 058
     Dates: start: 20190918

REACTIONS (2)
  - Fatigue [None]
  - Back pain [None]

NARRATIVE: CASE EVENT DATE: 201909
